FAERS Safety Report 17479334 (Version 1)
Quarter: 2020Q1

REPORT INFORMATION
  Report Type: Spontaneous
  Country: SE (occurrence: SE)
  Receive Date: 20200228
  Receipt Date: 20200228
  Transmission Date: 20200409
  Serious: Yes (Life-Threatening, Disabling)
  Sender: FDA-Public Use
  Company Number: SE-MYLANLABS-2020M1022938

PATIENT
  Age: 67 Year
  Sex: Female
  Weight: 60 kg

DRUGS (2)
  1. CITALOPRAM [Concomitant]
     Active Substance: CITALOPRAM HYDROBROMIDE
     Dosage: 20 MG/DAG
     Dates: start: 1998
  2. LETROZOLE. [Suspect]
     Active Substance: LETROZOLE
     Indication: BREAST CANCER FEMALE
     Route: 065
     Dates: start: 201910, end: 201912

REACTIONS (13)
  - Weight decreased [Recovered/Resolved]
  - Muscle spasms [Recovered/Resolved]
  - Pruritus [Recovered/Resolved]
  - Hypertension [Recovered/Resolved]
  - Abdominal pain [Recovered/Resolved]
  - Oral mucosal blistering [Recovered/Resolved]
  - Alopecia [Recovered/Resolved]
  - Suicidal ideation [Recovered/Resolved]
  - Tinnitus [Recovered/Resolved]
  - Feeling hot [Recovered/Resolved]
  - Bradyphrenia [Recovered/Resolved]
  - Palpitations [Recovered/Resolved]
  - Pyrexia [Recovered/Resolved]

NARRATIVE: CASE EVENT DATE: 2019
